FAERS Safety Report 22640082 (Version 2)
Quarter: 2023Q2

REPORT INFORMATION
  Report Type: Spontaneous
  Country: FR (occurrence: FR)
  Receive Date: 20230626
  Receipt Date: 20230629
  Transmission Date: 20230722
  Serious: Yes (Other)
  Sender: FDA-Public Use
  Company Number: None

PATIENT
  Age: 37 Year
  Sex: Male

DRUGS (8)
  1. QUETIAPINE [Suspect]
     Active Substance: QUETIAPINE
     Indication: Product used for unknown indication
     Dosage: 4 DOSAGE FORM
     Route: 065
     Dates: start: 20230119
  2. QUETIAPINE [Suspect]
     Active Substance: QUETIAPINE
     Dosage: UNK (2 TO 3 TABLETS PER DAY)
     Route: 065
  3. BROMAZEPAM [Suspect]
     Active Substance: BROMAZEPAM
     Indication: Product used for unknown indication
     Dosage: 7 DOSAGE FORM
     Route: 065
     Dates: start: 20230119
  4. ZOLPIDEM TARTRATE [Suspect]
     Active Substance: ZOLPIDEM TARTRATE
     Indication: Product used for unknown indication
     Dosage: 7 DOSAGE FORM
     Route: 065
     Dates: start: 20230119
  5. COCAINE [Suspect]
     Active Substance: COCAINE
     Indication: Product used for unknown indication
     Dosage: UNK
     Route: 065
  6. PRAZEPAM [Suspect]
     Active Substance: PRAZEPAM
     Indication: Product used for unknown indication
     Dosage: UNK
     Route: 065
  7. VIMPAT [Concomitant]
     Active Substance: LACOSAMIDE
     Indication: Product used for unknown indication
     Dosage: UNK
     Route: 065
  8. ESCITALOPRAM OXALATE [Concomitant]
     Active Substance: ESCITALOPRAM OXALATE
     Indication: Product used for unknown indication
     Dosage: UNK
     Route: 065

REACTIONS (3)
  - Drug dependence [Unknown]
  - Somnolence [Unknown]
  - Toxicity to various agents [Unknown]

NARRATIVE: CASE EVENT DATE: 20230119
